FAERS Safety Report 19133723 (Version 1)
Quarter: 2021Q2

REPORT INFORMATION
  Report Type: Spontaneous
  Country: US (occurrence: US)
  Receive Date: 20210414
  Receipt Date: 20210414
  Transmission Date: 20210717
  Serious: Yes (Other)
  Sender: FDA-Public Use
  Company Number: US-PFIZER INC-2021381878

PATIENT
  Age: 79 Year
  Sex: Male

DRUGS (1)
  1. XELJANZ [Suspect]
     Active Substance: TOFACITINIB CITRATE
     Indication: RHEUMATOID ARTHRITIS
     Dosage: 5 MG, 2X/DAY
     Route: 048
     Dates: start: 2020

REACTIONS (9)
  - Overdose [Unknown]
  - Memory impairment [Unknown]
  - Hypoaesthesia [Unknown]
  - Circumstance or information capable of leading to medication error [Unknown]
  - Abdominal discomfort [Unknown]
  - Pain [Unknown]
  - Neuropathy peripheral [Unknown]
  - Intentional product misuse [Unknown]
  - Dizziness [Unknown]
